FAERS Safety Report 23569073 (Version 2)
Quarter: 2024Q1

REPORT INFORMATION
  Report Type: Report from Study
  Country: IT (occurrence: IT)
  Receive Date: 20240227
  Receipt Date: 20240304
  Transmission Date: 20240409
  Serious: Yes (Hospitalization)
  Sender: FDA-Public Use
  Company Number: IT-ORPHANEU-2024001230

PATIENT

DRUGS (5)
  1. CARBAGLU [Suspect]
     Active Substance: CARGLUMIC ACID
     Indication: Propionic acidaemia
     Dosage: 50 MG/KG/DAY, BID
     Dates: start: 20220215
  2. CARBAGLU [Suspect]
     Active Substance: CARGLUMIC ACID
     Dosage: 48.5 MILLIGRAM PER KILOGRAM PER DAY, BID
  3. CARNITINE [Concomitant]
     Active Substance: CARNITINE
     Indication: Propionic acidaemia
     Dosage: 6 GRAM/ DAY
     Route: 048
     Dates: start: 20120706
  4. BIOTIN [Concomitant]
     Active Substance: BIOTIN
     Indication: Propionic acidaemia
     Dosage: 10 MG/DAY
     Route: 048
     Dates: start: 20120706
  5. SODIUM BICARBONATE [Concomitant]
     Active Substance: SODIUM BICARBONATE
     Indication: Propionic acidaemia
     Dosage: 12 MILLIEQUIVALENT/DAY
     Route: 048
     Dates: start: 20120706

REACTIONS (1)
  - Fatigue [Recovered/Resolved]

NARRATIVE: CASE EVENT DATE: 20230707
